FAERS Safety Report 12920482 (Version 1)
Quarter: 2016Q4

REPORT INFORMATION
  Report Type: Report from Study
  Country: US (occurrence: US)
  Receive Date: 20161108
  Receipt Date: 20161108
  Transmission Date: 20170207
  Serious: Yes (Other)
  Sender: FDA-Public Use
  Company Number: US-AMGEN-USASL2016144535

PATIENT
  Age: 77 Year
  Sex: Female
  Weight: 54.88 kg

DRUGS (3)
  1. PROLIA [Suspect]
     Active Substance: DENOSUMAB
     Indication: OSTEOPOROSIS
     Dosage: 60 MG, Q6MO
     Route: 058
     Dates: start: 2014
  2. CALCIUM WITH VITAMIN D [Concomitant]
     Active Substance: CALCIUM\VITAMIN D
  3. PLAVIX [Concomitant]
     Active Substance: CLOPIDOGREL BISULFATE

REACTIONS (9)
  - Fatigue [Recovered/Resolved]
  - Impaired driving ability [Unknown]
  - Headache [Recovered/Resolved]
  - Mobility decreased [Unknown]
  - Gait disturbance [Unknown]
  - Dysstasia [Unknown]
  - Back pain [Recovered/Resolved]
  - Therapeutic response decreased [Unknown]
  - Pain [Not Recovered/Not Resolved]

NARRATIVE: CASE EVENT DATE: 201609
